FAERS Safety Report 5398174-1 (Version None)
Quarter: 2007Q3

REPORT INFORMATION
  Report Type: 
  Country: None (occurrence: None)
  Receive Date: 20070726
  Receipt Date: 20070716
  Transmission Date: 20080115
  Serious: Yes (Hospitalization)
  Sender: FDA-Public Use
  Company Number: US-ABBOTT-07P-163-0374833-00

PATIENT
  Sex: Female
  Weight: 62.652 kg

DRUGS (2)
  1. DEPAKOTE [Suspect]
     Indication: CONVULSION
     Route: 048
     Dates: start: 19840101, end: 20070401
  2. DEPAKOTE [Suspect]
     Route: 048
     Dates: start: 20070501, end: 20070701

REACTIONS (2)
  - AMMONIA INCREASED [None]
  - LABORATORY TEST ABNORMAL [None]
